FAERS Safety Report 12540948 (Version 2)
Quarter: 2017Q1

REPORT INFORMATION
  Report Type: Spontaneous
  Country: US (occurrence: US)
  Receive Date: 20160708
  Receipt Date: 20170227
  Transmission Date: 20170428
  Serious: No
  Sender: FDA-Public Use
  Company Number: US-ACTELION-A-US2016-138375

PATIENT
  Age: 65 Year
  Sex: Male

DRUGS (1)
  1. VALCHLOR [Suspect]
     Active Substance: MECHLORETHAMINE
     Indication: MYCOSIS FUNGOIDES
     Dosage: EVERY THIRD DAY
     Route: 061
     Dates: start: 20160524, end: 20170221

REACTIONS (3)
  - Condition aggravated [Unknown]
  - Erythema [Unknown]
  - Productive cough [Unknown]
